FAERS Safety Report 20444293 (Version 1)
Quarter: 2022Q1

REPORT INFORMATION
  Report Type: Spontaneous
  Country: US (occurrence: None)
  Receive Date: 20220208
  Receipt Date: 20220208
  Transmission Date: 20220423
  Serious: Yes (Hospitalization)
  Sender: FDA-Public Use
  Company Number: None

PATIENT
  Age: 63 Year
  Sex: Male

DRUGS (6)
  1. VOTRIENT [Suspect]
     Active Substance: PAZOPANIB HYDROCHLORIDE
     Indication: Renal cancer
     Dosage: FREQUENCY : AS DIRECTED;?
     Route: 048
  2. VOTRIENT [Suspect]
     Active Substance: PAZOPANIB HYDROCHLORIDE
     Dosage: FREQUENCY : AS DIRECTED;?
     Route: 048
  3. ATENOLOL [Concomitant]
     Active Substance: ATENOLOL
  4. AZELASTINE [Concomitant]
     Active Substance: AZELASTINE
  5. LEVOTHYROXIN [Concomitant]
  6. NASONEX [Concomitant]
     Active Substance: MOMETASONE FUROATE

REACTIONS (3)
  - Therapy interrupted [None]
  - Diarrhoea [None]
  - Surgery [None]

NARRATIVE: CASE EVENT DATE: 20220207
